FAERS Safety Report 5513110-2 (Version None)
Quarter: 2007Q4

REPORT INFORMATION
  Report Type: 
  Country: None (occurrence: None)
  Receive Date: 20071112
  Receipt Date: 20071101
  Transmission Date: 20080405
  Serious: Yes (Hospitalization)
  Sender: FDA-Public Use
  Company Number: US-JNJFOC-20071100905

PATIENT
  Sex: Male
  Weight: 74.84 kg

DRUGS (11)
  1. FENTANYL TRANSDERMAL SYSTEM [Suspect]
     Route: 062
  2. FENTANYL TRANSDERMAL SYSTEM [Suspect]
     Route: 062
  3. FENTANYL TRANSDERMAL SYSTEM [Suspect]
     Indication: PROCTALGIA
     Route: 062
  4. FENTANYL TRANSDERMAL SYSTEM [Suspect]
     Indication: ABDOMINAL PAIN
     Route: 062
  5. ACTIQ [Suspect]
     Indication: PROCTALGIA
     Route: 002
  6. ACTIQ [Suspect]
     Indication: ABDOMINAL PAIN
     Route: 002
  7. ADDERALL 10 [Suspect]
     Indication: WITHDRAWAL SYNDROME
     Route: 065
  8. CYMBALTA [Suspect]
     Indication: DEPRESSION
     Route: 048
  9. DEPAKOTE [Concomitant]
     Route: 065
  10. GEODON [Concomitant]
     Route: 065
  11. VALIUM [Concomitant]
     Route: 065

REACTIONS (4)
  - CONVULSION [None]
  - DRUG DEPENDENCE [None]
  - DRUG WITHDRAWAL SYNDROME [None]
  - HEADACHE [None]
